FAERS Safety Report 6517807-7 (Version None)
Quarter: 2009Q4

REPORT INFORMATION
  Report Type: 
  Country: None (occurrence: None)
  Receive Date: 20091224
  Receipt Date: 20091221
  Transmission Date: 20100525
  Serious: Yes (Disabling, Other)
  Sender: FDA-Public Use
  Company Number: NO-B.I. PHARMACEUTICALS,INC./RIDGEFIELD-2009-DE-00374DE

PATIENT
  Sex: Male
  Weight: 50 kg

DRUGS (4)
  1. TIOTROPIUM-BROMIDE [Suspect]
     Indication: CHRONIC OBSTRUCTIVE PULMONARY DISEASE
     Dosage: 18 MCG
     Route: 055
     Dates: start: 20081113, end: 20090206
  2. PAROXETINE HCL [Concomitant]
     Indication: ANXIETY DISORDER
     Dosage: 20 MG
     Dates: start: 20000101
  3. DIAZEPAM [Concomitant]
     Indication: ANXIETY DISORDER
     Dosage: DAILY DOSE: ON DEMAND
     Dates: start: 20000101
  4. NITRAZEPAM [Concomitant]
     Indication: SLEEP DISORDER
     Dosage: DAILY DOSE: ON DEMAND
     Dates: start: 20000101

REACTIONS (3)
  - PROSTATE CANCER [None]
  - RENAL FAILURE ACUTE [None]
  - URINARY RETENTION [None]
